FAERS Safety Report 16500017 (Version 1)
Quarter: 2019Q3

REPORT INFORMATION
  Report Type: Spontaneous
  Country: US (occurrence: US)
  Receive Date: 20190701
  Receipt Date: 20190701
  Transmission Date: 20191004
  Serious: No
  Sender: FDA-Public Use
  Company Number: US-AUROBINDO-AUR-APU-2018-056704

PATIENT

DRUGS (3)
  1. RAMIPRIL. [Concomitant]
     Active Substance: RAMIPRIL
     Indication: PRODUCT USED FOR UNKNOWN INDICATION
     Dosage: UNK
  2. AMLODIPINE [Concomitant]
     Active Substance: AMLODIPINE BESYLATE
     Indication: PRODUCT USED FOR UNKNOWN INDICATION
     Dosage: UNK
  3. ESZOPICLONE TABLET 3 MG USP [Suspect]
     Active Substance: ESZOPICLONE
     Indication: SOMNOLENCE
     Dosage: 1 DOSAGE FORM, DAILY (01 TABLET PER DAY)
     Route: 065
     Dates: start: 20181115

REACTIONS (3)
  - Malaise [Unknown]
  - Chest pain [Unknown]
  - Dyspepsia [Unknown]

NARRATIVE: CASE EVENT DATE: 20181115
